FAERS Safety Report 6853596-4 (Version None)
Quarter: 2010Q3

REPORT INFORMATION
  Report Type: 
  Country: None (occurrence: None)
  Receive Date: 20100717
  Receipt Date: 20071212
  Transmission Date: 20110219
  Serious: No
  Sender: FDA-Public Use
  Company Number: US-PFIZER INC-2007106337

PATIENT
  Sex: Female
  Weight: 58.2 kg

DRUGS (2)
  1. CHANTIX [Suspect]
     Indication: SMOKING CESSATION THERAPY
     Route: 048
     Dates: start: 20071001
  2. LEXAPRO [Concomitant]
     Indication: DEPRESSION

REACTIONS (4)
  - ASTHENIA [None]
  - FATIGUE [None]
  - MOOD SWINGS [None]
  - WEIGHT INCREASED [None]
